FAERS Safety Report 8914816 (Version 1)
Quarter: 2012Q4

REPORT INFORMATION
  Report Type: 
  Country: US (occurrence: US)
  Receive Date: 20121119
  Receipt Date: 20121119
  Transmission Date: 20130627
  Serious: No
  Sender: FDA-Public Use
  Company Number: US-009507513-1211USA007163

PATIENT
  Age: 67 Year
  Sex: Female

DRUGS (8)
  1. PEGINTRON [Suspect]
     Indication: HEPATITIS C
     Dosage: Redipen
     Route: 058
     Dates: start: 20121113
  2. RIBAPAK [Suspect]
  3. CARVEDILOL [Concomitant]
  4. HYDROCHLOROTHIAZIDE [Concomitant]
  5. LOSARTAN POTASSIUM [Concomitant]
  6. OREGANO OIL [Concomitant]
  7. OLIVE [Concomitant]
  8. GLUCO [Concomitant]

REACTIONS (5)
  - Chills [Unknown]
  - Chills [Unknown]
  - Pyrexia [Unknown]
  - Nausea [Unknown]
  - Fatigue [Unknown]
